FAERS Safety Report 5144474-X (Version None)
Quarter: 2006Q4

REPORT INFORMATION
  Report Type: 
  Country: None (occurrence: None)
  Receive Date: 20061106
  Receipt Date: 20061030
  Transmission Date: 20070319
  Serious: Yes (Hospitalization)
  Sender: FDA-Public Use
  Company Number: PT-ROXANE LABORATORIES, INC-2006-BP-12710RO

PATIENT
  Age: 3 Year
  Sex: Male

DRUGS (1)
  1. METHADONE HCL [Suspect]
     Indication: POISONING

REACTIONS (12)
  - ACCIDENTAL EXPOSURE [None]
  - BLOOD GLUCOSE INCREASED [None]
  - COMA [None]
  - COORDINATION ABNORMAL [None]
  - DRUG WITHDRAWAL SYNDROME NEONATAL [None]
  - DYSARTHRIA [None]
  - DYSPNOEA [None]
  - ENCEPHALOPATHY [None]
  - HEMIPLEGIA [None]
  - HYDROCEPHALUS [None]
  - HYPOTENSION [None]
  - MUTISM [None]
